FAERS Safety Report 14330259 (Version 2)
Quarter: 2018Q1

REPORT INFORMATION
  Report Type: Spontaneous
  Country: JP (occurrence: JP)
  Receive Date: 20171227
  Receipt Date: 20180124
  Transmission Date: 20180509
  Serious: Yes (Hospitalization, Other)
  Sender: FDA-Public Use
  Company Number: JP-CELGENEUS-JPN-20171206914

PATIENT
  Age: 56 Year
  Sex: Female

DRUGS (3)
  1. VELCADE [Concomitant]
     Active Substance: BORTEZOMIB
     Indication: CARDIAC AMYLOIDOSIS
     Route: 062
     Dates: start: 20171205, end: 20171218
  2. REVLIMID [Suspect]
     Active Substance: LENALIDOMIDE
     Indication: CARDIAC AMYLOIDOSIS
     Dosage: 25 MILLIGRAM
     Route: 048
     Dates: start: 20171205, end: 20171218
  3. LENADEX [Suspect]
     Active Substance: DEXAMETHASONE ACETATE
     Indication: CARDIAC AMYLOIDOSIS
     Dosage: 40 MILLIGRAM
     Route: 048
     Dates: start: 20171205, end: 20171218

REACTIONS (2)
  - Cerebrovascular accident [Unknown]
  - Arrhythmia [Unknown]

NARRATIVE: CASE EVENT DATE: 20171215
